FAERS Safety Report 9883118 (Version 1)
Quarter: 2014Q1

REPORT INFORMATION
  Report Type: Spontaneous
  Country: US (occurrence: None)
  Receive Date: 20140205
  Receipt Date: 20140205
  Transmission Date: 20141002
  Serious: Yes (Death, Hospitalization)
  Sender: FDA-Public Use
  Company Number: IMP_07118_2014

PATIENT
  Age: 38 Year
  Sex: Male

DRUGS (1)
  1. METFORMIN 500 MG [Suspect]
     Indication: PRODUCT USED FOR UNKNOWN INDICATION
     Route: 048

REACTIONS (21)
  - Completed suicide [None]
  - Blood glucose increased [None]
  - Blood creatinine increased [None]
  - Prothrombin time prolonged [None]
  - International normalised ratio increased [None]
  - Aspartate aminotransferase increased [None]
  - Alanine aminotransferase increased [None]
  - Nausea [None]
  - Muscle spasms [None]
  - Lactic acidosis [None]
  - Cardio-respiratory arrest [None]
  - Toxicity to various agents [None]
  - Agitation [None]
  - Faecal incontinence [None]
  - Hypoxic-ischaemic encephalopathy [None]
  - Multi-organ failure [None]
  - Pulmonary oedema [None]
  - Bronchopneumonia [None]
  - Arteriosclerosis [None]
  - Cardiomegaly [None]
  - Hepatic steatosis [None]
